FAERS Safety Report 7742606-8 (Version None)
Quarter: 2011Q3

REPORT INFORMATION
  Report Type: 
  Country: None (occurrence: None)
  Receive Date: 20110912
  Receipt Date: 20110908
  Transmission Date: 20111222
  Serious: Yes (Other)
  Sender: FDA-Public Use
  Company Number: PHHY2011DE17472

PATIENT
  Sex: Female
  Weight: 58 kg

DRUGS (2)
  1. FEMARA [Suspect]
     Indication: BREAST CANCER
     Dosage: 2.5 MG, QD
     Route: 048
     Dates: start: 20060515, end: 20070808
  2. LEVOTHYROXINE SODIUM [Concomitant]
     Indication: HYPOTHYROIDISM
     Route: 048
     Dates: start: 20070101

REACTIONS (6)
  - HYPERHIDROSIS [None]
  - FATIGUE [None]
  - VISUAL IMPAIRMENT [None]
  - DYSPNOEA [None]
  - SLEEP DISORDER [None]
  - GENERAL PHYSICAL HEALTH DETERIORATION [None]
